FAERS Safety Report 25089678 (Version 2)
Quarter: 2025Q1

REPORT INFORMATION
  Report Type: Report from Study
  Country: US (occurrence: US)
  Receive Date: 20250318
  Receipt Date: 20250324
  Transmission Date: 20250409
  Serious: Yes (Hospitalization)
  Sender: ALNYLAM PHARMACEUTICALS
  Company Number: US-ALNYLAM PHARMACEUTICALS, INC.-ALN-2025-001694

PATIENT

DRUGS (2)
  1. GIVLAARI [Suspect]
     Active Substance: GIVOSIRAN SODIUM
     Indication: Porphyria acute
     Dosage: 150 MILLIGRAM, MONTHLY
     Route: 058
     Dates: start: 20241107, end: 20241107
  2. HEMIN [Concomitant]
     Active Substance: HEMIN
     Indication: Product used for unknown indication
     Route: 065

REACTIONS (4)
  - Porphyria acute [Not Recovered/Not Resolved]
  - Stress [Unknown]
  - Abdominal pain [Unknown]
  - Unevaluable event [Unknown]

NARRATIVE: CASE EVENT DATE: 20250307
